FAERS Safety Report 9251082 (Version 1)
Quarter: 2013Q2

REPORT INFORMATION
  Report Type: Spontaneous
  Country: FR (occurrence: FR)
  Receive Date: 20130424
  Receipt Date: 20130424
  Transmission Date: 20140414
  Serious: Yes (Hospitalization)
  Sender: FDA-Public Use
  Company Number: FR-SANOFI-AVENTIS-2013SA040917

PATIENT
  Age: 72 Year
  Sex: Male

DRUGS (2)
  1. PLAVIX [Suspect]
     Indication: PRODUCT USED FOR UNKNOWN INDICATION
     Route: 048
  2. COUMADINE [Suspect]
     Indication: PRODUCT USED FOR UNKNOWN INDICATION
     Dosage: DOSE: 1MG THE EVEN DAY AND 3 MG THE ODD DAY
     Route: 048
     Dates: end: 20130114

REACTIONS (3)
  - Melaena [Recovered/Resolved]
  - Haematemesis [Recovered/Resolved]
  - International normalised ratio increased [Recovered/Resolved]
